FAERS Safety Report 7988581-2 (Version None)
Quarter: 2011Q4

REPORT INFORMATION
  Report Type: 
  Country: None (occurrence: None)
  Receive Date: 20111218
  Receipt Date: 20070620
  Transmission Date: 20120403
  Serious: Yes (Other)
  Sender: FDA-Public Use
  Company Number: PHHY2007MX011470

PATIENT
  Sex: Female

DRUGS (2)
  1. DIOVAN HCT [Suspect]
     Indication: HYPERTENSION
     Dosage: 2 DF, DAILY
     Route: 048
     Dates: start: 20051201
  2. BI-EUGLUCON M [Concomitant]
     Indication: DIABETES MELLITUS
     Dosage: 4 DF, DAILY
     Route: 048

REACTIONS (1)
  - EMPHYSEMA [None]
